FAERS Safety Report 9291134 (Version 1)
Quarter: 2012Q4

REPORT INFORMATION
  Report Type: Spontaneous
  Country: US (occurrence: None)
  Receive Date: 20121009
  Receipt Date: 20121009
  Transmission Date: 20130627
  Serious: Yes (Hospitalization, Other)
  Sender: FDA-Public Use
  Company Number: 2011MA007908

PATIENT
  Sex: Female
  Weight: 90.72 kg

DRUGS (69)
  1. METOCLOPRAMIDE TABLETS USP, 10 MG (PUREPAC) [Suspect]
     Indication: MIGRAINE HEADACHE
     Dates: start: 20070327, end: 20110606
  2. METOCLOPRAMIDE TABLETS USP, 10 MG (PUREPAC) [Suspect]
     Indication: NAUSEA
     Dates: start: 20070327, end: 20110606
  3. ACIPHEX [Concomitant]
  4. ADVAIR [Concomitant]
  5. AMANTADINE [Concomitant]
  6. AMBIEN [Concomitant]
  7. AMPHETAMINES [Concomitant]
  8. ANTIBIOTIC EARDROPS [Concomitant]
  9. BACLOFEN [Concomitant]
  10. BARBITURATES [Concomitant]
  11. BISACODYL [Concomitant]
  12. BUTALBITAL/APAP/CAFFEINE [Concomitant]
  13. CARBAMAZEPINE [Concomitant]
  14. CELEBREX [Concomitant]
  15. CELEXA [Concomitant]
  16. CHOLESTYRAMINE [Concomitant]
  17. CIPRODEX [Concomitant]
  18. CLEARLAX [Concomitant]
  19. CLINDAMYCIN [Concomitant]
  20. CLONAZEPAM [Concomitant]
  21. CLOTRIMAZOLE/BETAMETHASONE [Concomitant]
  22. CYCLOBENAZEPRINE [Concomitant]
  23. CYMBALTA [Concomitant]
  24. DEXEDRINE [Concomitant]
  25. DEXTROAMPHETAMINE [Concomitant]
  26. DIAZEPAM [Concomitant]
  27. DICLOXACILLIN [Concomitant]
  28. DIPHENOXYLATE/ATROPINE [Concomitant]
  29. DONNATOL [Concomitant]
  30. EFFEXOR [Concomitant]
  31. EPIDRIN [Concomitant]
  32. ESTRACE [Concomitant]
  33. FIORICET [Concomitant]
  34. FLOXIN [Concomitant]
  35. FLUTICASONE [Concomitant]
  36. FUROSEMIDE [Concomitant]
  37. HYDROCODONE [Concomitant]
  38. HYZAAR [Concomitant]
  39. KLONOPIN [Concomitant]
  40. LEVOTHYROXINE [Concomitant]
  41. LOPERAMIDE [Concomitant]
  42. MELOXICAM [Concomitant]
  43. MIRAPEX [Concomitant]
  44. MIRTAZAPINE [Concomitant]
  45. NARCOTICS [Concomitant]
  46. NASONEX [Concomitant]
  47. NEURONTIN [Concomitant]
  48. NEXIUM [Concomitant]
  49. OXYCODONE [Concomitant]
  50. PEPCID [Concomitant]
  51. POTASSIUM [Concomitant]
  52. PREDNISONE [Concomitant]
  53. PREMARIN [Concomitant]
  54. PREVACID [Concomitant]
  55. PRINIVIL [Concomitant]
  56. PROAIR [Concomitant]
  57. PROCARDIA [Concomitant]
  58. PROCHLORPERAZINE [Concomitant]
  59. PROMETHAZINE [Concomitant]
  60. PROVIGIL [Concomitant]
  61. QUININE SULFATE [Concomitant]
  62. RAMERON [Concomitant]
  63. SEROQUEL [Concomitant]
  64. SUCRALFATE [Concomitant]
  65. SULAR [Concomitant]
  66. TOPAMAX [Concomitant]
  67. TRAZODONE [Concomitant]
  68. TRIAMCINOLONE [Concomitant]
  69. ULTRAM [Concomitant]

REACTIONS (68)
  - Extrapyramidal disorder [None]
  - Tremor [None]
  - Emotional disorder [None]
  - Injury [None]
  - Electroencephalogram abnormal [None]
  - Panic attack [None]
  - Anxiety [None]
  - Depression [None]
  - Gastritis [None]
  - Hiatus hernia [None]
  - Post-traumatic stress disorder [None]
  - Insomnia [None]
  - startle reflex [None]
  - changes in appetite [None]
  - Suicidal ideation [None]
  - Stress [None]
  - Limb injury [None]
  - Drug interaction [None]
  - Large intestine polyp [None]
  - Activities of daily living impaired [None]
  - Economic problem [None]
  - Vertigo positional [None]
  - Tympanic membrane perforation [None]
  - Diverticulum [None]
  - SCHATSKI RING [None]
  - Hepatitis acute [None]
  - colon diverticulosis [None]
  - Sleep apnoea syndrome [None]
  - Periodic limb movement disorder [None]
  - Dysphagia [None]
  - Drug withdrawal syndrome [None]
  - Migraine [None]
  - Hypothyroidism [None]
  - osteoarthritis, [None]
  - Osteoarthritis [None]
  - Osteopenia [None]
  - Bipolar disorder [None]
  - Gastrooesophageal reflux disease [None]
  - Mastoiditis [None]
  - Sinusitis [None]
  - Urinary tract infection [None]
  - chronic pain syndrome [None]
  - Fibromyalgia [None]
  - Raynaud^s phenomenon [None]
  - Meniere^s disease [None]
  - Cataract [None]
  - Peroneal nerve palsy [None]
  - Sinusitis [None]
  - Oxygen saturation decreased [None]
  - Cerebellar atrophy [None]
  - Muscle contracture [None]
  - Vaginal prolapse [None]
  - Dyskinesia [None]
  - memory loss, [None]
  - Amnesia [None]
  - Ataxia [None]
  - VIIth nerve paralysis [None]
  - Deafness bilateral [None]
  - Retinopathy hypertensive [None]
  - sensiomotor peripheral neuropathy [None]
  - Venous insufficiency [None]
  - Intervertebral disc degeneration [None]
  - Spinal column stenosis [None]
  - Back pain [None]
  - Radiculopathy [None]
  - Hemiparesis [None]
  - positive drug screen [None]
  - Drug screen positive [None]
